FAERS Safety Report 6019042-8 (Version None)
Quarter: 2008Q4

REPORT INFORMATION
  Report Type: 
  Country: None (occurrence: None)
  Receive Date: 20081224
  Receipt Date: 20081211
  Transmission Date: 20090506
  Serious: Yes (Death)
  Sender: FDA-Public Use
  Company Number: KR-PFIZER INC-2008089366

PATIENT
  Sex: Female
  Weight: 56 kg

DRUGS (6)
  1. VORICONAZOLE [Suspect]
     Indication: SCEDOSPORIUM INFECTION
     Route: 042
     Dates: start: 20080314, end: 20080321
  2. DIFLUCAN [Concomitant]
     Route: 042
     Dates: start: 20080314, end: 20080314
  3. CILASTATIN SODIUM W/IMIPENEM [Concomitant]
     Route: 042
     Dates: start: 20080316, end: 20080321
  4. COLISTIMETHATE SODIUM [Concomitant]
     Route: 042
     Dates: start: 20080314, end: 20080321
  5. TEICOPLANIN [Concomitant]
     Route: 042
     Dates: start: 20080315, end: 20080317
  6. TEICOPLANIN [Concomitant]
     Route: 042
     Dates: start: 20080319, end: 20080321

REACTIONS (1)
  - DEATH [None]
